FAERS Safety Report 5134327-5 (Version None)
Quarter: 2006Q4

REPORT INFORMATION
  Report Type: 
  Country: None (occurrence: None)
  Receive Date: 20060831
  Receipt Date: 20060706
  Transmission Date: 20070319
  Serious: No
  Sender: FDA-Public Use
  Company Number: 2006-BP-06440BP

PATIENT
  Age: 78 Year
  Sex: Female

DRUGS (9)
  1. SPIRIVA [Suspect]
     Indication: CHRONIC OBSTRUCTIVE PULMONARY DISEASE
     Dosage: 18 MCG (18 MCG,QD),IH
     Dates: start: 20060201
  2. LORAZEPAM (LORAZAPEM) (LORAZEPAM) [Concomitant]
  3. LEVOTHYROXINE SODIUM [Concomitant]
  4. TOPROL-XL [Concomitant]
  5. CENTRUM (CENTRUM /00554501/) [Concomitant]
  6. CALCIUM + D (CALCIUM D) [Concomitant]
  7. OCUVITE (OCUVITE /01053801/) [Concomitant]
  8. ASPIRIN [Concomitant]
  9. EXTRA STRENGTH TYLENOL [Concomitant]

REACTIONS (2)
  - DRUG INEFFECTIVE [None]
  - DYSPNOEA [None]
